FAERS Safety Report 5688105-9 (Version None)
Quarter: 2008Q1

REPORT INFORMATION
  Report Type: 
  Country: None (occurrence: None)
  Receive Date: 20080327
  Receipt Date: 20080318
  Transmission Date: 20080703
  Serious: Yes (Hospitalization, Other)
  Sender: FDA-Public Use
  Company Number: US023025

PATIENT
  Age: 63 Year
  Sex: Female
  Weight: 65.7716 kg

DRUGS (7)
  1. GABITRIL [Suspect]
     Indication: NEURALGIA
     Dosage: 4 MG QID ORAL
     Route: 048
     Dates: start: 20050101, end: 20070301
  2. GABITRIL [Suspect]
     Indication: NEURALGIA
     Dosage: ORAL
     Route: 048
     Dates: start: 20070501
  3. CYMBALTA [Concomitant]
  4. PREMARIN [Concomitant]
  5. PENTASA [Concomitant]
  6. ACIPHEX [Concomitant]
  7. LASIX [Concomitant]

REACTIONS (8)
  - CARDIAC ARREST [None]
  - CONVULSION [None]
  - FALL [None]
  - POST PROCEDURAL DISCHARGE [None]
  - RENAL FAILURE [None]
  - SPINAL OPERATION [None]
  - WEIGHT DECREASED [None]
  - WITHDRAWAL SYNDROME [None]
